FAERS Safety Report 15337704 (Version 1)
Quarter: 2018Q3

REPORT INFORMATION
  Report Type: Spontaneous
  Country: CN (occurrence: CN)
  Receive Date: 20180831
  Receipt Date: 20180831
  Transmission Date: 20181010
  Serious: Yes (Hospitalization, Other)
  Sender: FDA-Public Use
  Company Number: CN-ROCHE-2176561

PATIENT
  Age: 85 Year
  Sex: Male
  Weight: 50 kg

DRUGS (1)
  1. MABTHERA [Suspect]
     Active Substance: RITUXIMAB
     Indication: LYMPHOMA
     Route: 041
     Dates: start: 20180629, end: 20180629

REACTIONS (4)
  - Temperature intolerance [Recovering/Resolving]
  - Pyrexia [Recovering/Resolving]
  - Chills [Recovering/Resolving]
  - Muscle twitching [Recovering/Resolving]

NARRATIVE: CASE EVENT DATE: 20180629
